FAERS Safety Report 4482210-0 (Version None)
Quarter: 2004Q4

REPORT INFORMATION
  Report Type: 
  Country: None (occurrence: None)
  Receive Date: 20041019
  Receipt Date: 20041019
  Transmission Date: 20050328
  Serious: Yes (Other)
  Sender: FDA-Public Use
  Company Number: None

PATIENT
  Age: 44 Year
  Sex: Female
  Weight: 71 kg

DRUGS (10)
  1. GLEEVEC [Suspect]
     Indication: CHRONIC MYELOID LEUKAEMIA
     Dosage: 600MG PO ORAL
     Route: 048
     Dates: start: 20041009, end: 20041012
  2. VORICONAZOLE [Concomitant]
  3. MEPERIDINE HCL [Concomitant]
  4. DIPHENHYDRAMINE HCL [Concomitant]
  5. TYLENOL [Concomitant]
  6. AMP B [Concomitant]
  7. ALPRAZOLAM [Concomitant]
  8. DOCUSATE [Concomitant]
  9. AVINZA [Concomitant]
  10. FAMCYCLOVIR [Concomitant]

REACTIONS (3)
  - DIARRHOEA [None]
  - NAUSEA [None]
  - VOMITING [None]
